FAERS Safety Report 6530412-1 (Version None)
Quarter: 2010Q1

REPORT INFORMATION
  Report Type: 
  Country: None (occurrence: None)
  Receive Date: 20100106
  Receipt Date: 20100106
  Transmission Date: 20100710
  Serious: Yes (Other)
  Sender: FDA-Public Use
  Company Number: None

PATIENT
  Age: 46 Year
  Sex: Female
  Weight: 68.0396 kg

DRUGS (1)
  1. ZICAM NASAL SPRAY EXTRA STRENGTH [Suspect]
     Indication: NASAL CONGESTION
     Dosage: 1SPRAY 3 TIMES NASAL
     Route: 045
     Dates: start: 20090901, end: 20090902

REACTIONS (1)
  - ANOSMIA [None]
